FAERS Safety Report 8124836-9 (Version None)
Quarter: 2012Q1

REPORT INFORMATION
  Report Type: 
  Country: None (occurrence: None)
  Receive Date: 20120209
  Receipt Date: 20120203
  Transmission Date: 20120608
  Serious: Yes (Other)
  Sender: FDA-Public Use
  Company Number: DE-PFIZER INC-2012031557

PATIENT
  Sex: Female

DRUGS (1)
  1. LEVONORGESTREL [Suspect]
     Dosage: UNK
     Dates: start: 19970101

REACTIONS (6)
  - VARICOSE VEIN [None]
  - GENITAL HERPES [None]
  - HEPATIC CYST [None]
  - AUTOIMMUNE THYROIDITIS [None]
  - WEIGHT INCREASED [None]
  - ABDOMINAL PAIN UPPER [None]
